FAERS Safety Report 25665588 (Version 1)
Quarter: 2025Q3

REPORT INFORMATION
  Report Type: Spontaneous
  Country: US (occurrence: None)
  Receive Date: 20250811
  Receipt Date: 20250811
  Transmission Date: 20251020
  Serious: Yes (Hospitalization)
  Sender: FDA-CTU
  Company Number: None

PATIENT
  Age: 65 Year
  Sex: Male
  Weight: 85.05 kg

DRUGS (12)
  1. TEZSPIRE [Suspect]
     Active Substance: TEZEPELUMAB-EKKO
     Indication: Asthma
     Dosage: OTHER FREQUENCY : MONTHLY;?
     Route: 058
     Dates: start: 20250701
  2. VITAMIN D3 10MCG [Concomitant]
     Dates: start: 20250630
  3. ATORVASTATIN [Concomitant]
     Active Substance: ATORVASTATIN
     Dates: start: 20250630
  4. ASPIRIN 81MG TAB [Concomitant]
     Dates: start: 20250630
  5. IBUPROFEN [Concomitant]
     Active Substance: IBUPROFEN
     Dates: start: 20250626
  6. METOPROLOL SUCCINATE [Concomitant]
     Active Substance: METOPROLOL SUCCINATE
     Dates: start: 20250626
  7. FAMOTIDINE [Concomitant]
     Active Substance: FAMOTIDINE
     Dates: start: 20250626
  8. ALBUTEROL SULF 0.63MG/3ML [Concomitant]
     Dates: start: 20250626
  9. TRELEGY ELL 100-62.5-25 AEP [Concomitant]
     Dates: start: 20250626
  10. RANOLAZINE ER 500MG TAB [Concomitant]
     Dates: start: 20250626
  11. VENTOLIN HFA [Concomitant]
     Active Substance: ALBUTEROL SULFATE
     Dates: start: 20250626
  12. LOSARTAN POT 25MG TAB [Concomitant]
     Dates: start: 20250626

REACTIONS (2)
  - Dizziness [None]
  - Vision blurred [None]

NARRATIVE: CASE EVENT DATE: 20250811
